FAERS Safety Report 4350275-2 (Version None)
Quarter: 2004Q2

REPORT INFORMATION
  Report Type: 
  Country: None (occurrence: None)
  Receive Date: 20040426
  Receipt Date: 20040414
  Transmission Date: 20050107
  Serious: Yes (Hospitalization)
  Sender: FDA-Public Use
  Company Number: JP-SHR-04-023912

PATIENT
  Age: 59 Year
  Sex: Male

DRUGS (1)
  1. PROSCOPE 370 (IOPROMIDE) [Suspect]
     Indication: ANGIOGRAM
     Dates: start: 20040324, end: 20040324

REACTIONS (1)
  - ANAPHYLACTIC SHOCK [None]
